FAERS Safety Report 25589053 (Version 2)
Quarter: 2025Q3

REPORT INFORMATION
  Report Type: Spontaneous
  Country: GB (occurrence: GB)
  Receive Date: 20250722
  Receipt Date: 20250731
  Transmission Date: 20251020
  Serious: Yes (Hospitalization, Other)
  Sender: ALKEM
  Company Number: None

PATIENT
  Age: 2 Day
  Sex: Male
  Weight: 2 kg

DRUGS (3)
  1. CINACALCET [Suspect]
     Active Substance: CINACALCET
     Indication: Product used for unknown indication
     Route: 063
  2. TACROLIMUS [Suspect]
     Active Substance: TACROLIMUS
     Indication: Product used for unknown indication
     Route: 063
  3. LABETALOL [Suspect]
     Active Substance: LABETALOL
     Indication: Product used for unknown indication
     Route: 063

REACTIONS (4)
  - Hypomagnesaemia [Recovered/Resolved]
  - Blood parathyroid hormone increased [Unknown]
  - Hypocalcaemia [Recovered/Resolved]
  - Exposure via breast milk [Unknown]
